FAERS Safety Report 6930207-0 (Version None)
Quarter: 2010Q3

REPORT INFORMATION
  Report Type: 
  Country: None (occurrence: None)
  Receive Date: 20100818
  Receipt Date: 20100806
  Transmission Date: 20110219
  Serious: Yes (Other)
  Sender: FDA-Public Use
  Company Number: PHFR2010GB00811

PATIENT
  Sex: Male

DRUGS (4)
  1. CLOZARIL [Suspect]
     Indication: SCHIZOPHRENIA
     Dosage: 300 MG NOCTE
     Route: 048
     Dates: start: 20090902
  2. VENLAFAXINE [Concomitant]
     Indication: DEPRESSION
     Dosage: 75 MG, BID
     Route: 048
  3. MIRTAZAPINE [Concomitant]
     Indication: DEPRESSION
     Dosage: 45 MG NOCTE
  4. SENNA [Concomitant]

REACTIONS (7)
  - ANTIPSYCHOTIC DRUG LEVEL INCREASED [None]
  - CONFUSIONAL STATE [None]
  - CONVULSION [None]
  - FALL [None]
  - FOAMING AT MOUTH [None]
  - GRAND MAL CONVULSION [None]
  - INJURY [None]
